FAERS Safety Report 5162358-8 (Version None)
Quarter: 2006Q4

REPORT INFORMATION
  Report Type: 
  Country: None (occurrence: None)
  Receive Date: 20061130
  Receipt Date: 20060824
  Transmission Date: 20070319
  Serious: Yes (Life-Threatening, Hospitalization)
  Sender: FDA-Public Use
  Company Number: PHNU2006DE02907

PATIENT
  Age: 60 Year
  Sex: Male

DRUGS (7)
  1. PANTOZOL [Concomitant]
     Dosage: 40 MG DAILY
     Route: 048
  2. AMARYL [Concomitant]
     Indication: DIABETES MELLITUS
     Dosage: 1.5 MG DAILY
     Route: 048
  3. DELIX [Concomitant]
     Indication: HYPERTENSION
     Dosage: 5 MG DAILY
     Route: 048
  4. PROGRAF [Concomitant]
     Dosage: 4 MG DAILY
     Route: 048
  5. SOLU-DECORTIN-H [Concomitant]
     Dosage: 500 MG DAILY
     Route: 042
     Dates: start: 20060823
  6. SANDIMMUNE [Suspect]
     Indication: LIVER TRANSPLANT
     Route: 048
  7. SANDIMMUNE [Suspect]
     Indication: LIVER TRANSPLANT

REACTIONS (11)
  - ANGIONEUROTIC OEDEMA [None]
  - ECZEMA VESICULAR [None]
  - GRAFT VERSUS HOST DISEASE [None]
  - LEUKOPENIA [None]
  - NEUTROPENIA [None]
  - PANCYTOPENIA [None]
  - PNEUMONIA [None]
  - PYREXIA [None]
  - RASH [None]
  - SEPSIS [None]
  - SWOLLEN TONGUE [None]
